FAERS Safety Report 9629930 (Version 1)
Quarter: 2013Q4

REPORT INFORMATION
  Report Type: Spontaneous
  Country: GB (occurrence: US)
  Receive Date: 20131017
  Receipt Date: 20131017
  Transmission Date: 20140711
  Serious: Yes (Other)
  Sender: FDA-Public Use
  Company Number: US-PFIZER INC-2013291767

PATIENT
  Age: 17 Month
  Sex: Male

DRUGS (6)
  1. PHENYTOIN [Suspect]
     Dosage: 75 MG, DAILY
  2. PHENYTOIN [Suspect]
     Dosage: 100 MG, DAILY
  3. PHENYTOIN [Suspect]
     Dosage: 75 MG, DAILY
  4. PHENOBARBITAL [Suspect]
     Indication: CONVULSION
     Dosage: UNK
  5. PHENOBARBITAL [Suspect]
     Dosage: 75 MG, DAILY
  6. PRIMIDONE [Suspect]
     Indication: CONVULSION
     Dosage: 125 MG, DAILY

REACTIONS (9)
  - Neurodegenerative disorder [Unknown]
  - Feeding disorder of infancy or early childhood [Recovered/Resolved]
  - Childhood disintegrative disorder [Recovered/Resolved]
  - Altered state of consciousness [Recovered/Resolved]
  - Cerebral atrophy [Unknown]
  - Toxicity to various agents [Recovered/Resolved]
  - Neurological decompensation [Unknown]
  - Developmental delay [Unknown]
  - Hypotonia [Unknown]
